FAERS Safety Report 6347553-4 (Version None)
Quarter: 2009Q3

REPORT INFORMATION
  Report Type: 
  Country: None (occurrence: None)
  Receive Date: 20090909
  Receipt Date: 20090909
  Transmission Date: 20100115
  Serious: Yes (Life-Threatening, Other)
  Sender: FDA-Public Use
  Company Number: None

PATIENT
  Age: 58 Year
  Sex: Male

DRUGS (2)
  1. NITROGLYCERIN SL TABLETS KONEC(GLENMARK) [Suspect]
     Indication: ANGINA PECTORIS
     Dosage: DISSOLVE 1 TABLET UNDER THE TONGUE WHEN NEEDED
  2. NITROGLYCERIN SL TABLETS KONEC(GLENMARK) [Suspect]
     Indication: MYOCARDIAL ISCHAEMIA
     Dosage: DISSOLVE 1 TABLET UNDER THE TONGUE WHEN NEEDED

REACTIONS (3)
  - DRUG INEFFECTIVE [None]
  - PRODUCT SOLUBILITY ABNORMAL [None]
  - WRONG TECHNIQUE IN DRUG USAGE PROCESS [None]
